FAERS Safety Report 8268082-7 (Version None)
Quarter: 2012Q2

REPORT INFORMATION
  Report Type: 
  Country: None (occurrence: None)
  Receive Date: 20120404
  Receipt Date: 20120323
  Transmission Date: 20120825
  Serious: Yes (Hospitalization)
  Sender: FDA-Public Use
  Company Number: AC0_29892_2012

PATIENT
  Age: 55 Year
  Sex: Female

DRUGS (4)
  1. FAMPYRA (DALFAMPRIDINE) TABLET, 10MG [Suspect]
     Indication: MULTIPLE SCLEROSIS
     Dosage: 10 MG, BID, ORAL
     Route: 048
     Dates: start: 20120117
  2. MITOXANTRONE [Concomitant]
  3. CYTOKINES AND IMMUNOMODULATORS [Concomitant]
  4. BACLOFEN [Concomitant]

REACTIONS (1)
  - STATUS EPILEPTICUS [None]
